FAERS Safety Report 9125582 (Version 1)
Quarter: 2013Q1

REPORT INFORMATION
  Report Type: Spontaneous
  Country: US (occurrence: US)
  Receive Date: 20130117
  Receipt Date: 20130117
  Transmission Date: 20140127
  Serious: No
  Sender: FDA-Public Use
  Company Number: US-009507513-1301USA008131

PATIENT
  Sex: Male

DRUGS (4)
  1. CLARITIN [Suspect]
     Indication: INFLUENZA
     Dosage: UNK, UNKNOWN
     Route: 048
  2. CLARITIN [Suspect]
     Indication: OROPHARYNGEAL PAIN
  3. CLARITIN [Suspect]
     Indication: RESPIRATORY TRACT CONGESTION
  4. CLARITIN [Suspect]
     Indication: COUGH

REACTIONS (3)
  - Therapeutic response unexpected [Unknown]
  - Off label use [Unknown]
  - Drug ineffective for unapproved indication [Unknown]
